FAERS Safety Report 7970978-8 (Version None)
Quarter: 2011Q4

REPORT INFORMATION
  Report Type: 
  Country: None (occurrence: None)
  Receive Date: 20111212
  Receipt Date: 20111202
  Transmission Date: 20120403
  Serious: Yes (Death, Life-Threatening, Hospitalization)
  Sender: FDA-Public Use
  Company Number: ZW-BRISTOL-MYERS SQUIBB COMPANY-15573504

PATIENT
  Age: 32 Year
  Sex: Female
  Weight: 48 kg

DRUGS (7)
  1. PHENOBARBITAL TAB [Suspect]
     Indication: EPILEPSY
     Dosage: UNK-09MAY11,UNK-09NOV11,INTERRUPTED ON 09NOV11,HANDFULL OF TABS
     Route: 048
     Dates: start: 20110328
  2. STAVUDINE [Suspect]
     Indication: HIV INFECTION
     Dosage: LAST DOSE:28FEB2011,1MAR11,10MAY11,09NOV11 INTD ON 09NOV11
     Route: 048
     Dates: start: 20101005, end: 20111130
  3. LAMIVUDINE [Suspect]
     Indication: HIV INFECTION
     Dosage: LAST DOSE:28FEB11,1MAR11,10MAY11,09NOV11 INTD ON 09NOV11
     Route: 048
     Dates: start: 20100624, end: 20111129
  4. CARBAMAZEPINE [Concomitant]
     Dosage: UNK-09MAY11,UNK-08NOV11
     Dates: end: 20111108
  5. PHENOBARBITAL TAB [Suspect]
     Indication: SYNCOPE
     Dosage: UNK-09MAY11,UNK-09NOV11,INTERRUPTED ON 09NOV11,HANDFULL OF TABS
     Route: 048
     Dates: start: 20110328
  6. EFAVIRENZ [Suspect]
     Indication: HIV INFECTION
     Dosage: PM LAST DOSE:28FEB2011,1MAR2011,28MAR11,10MAY11(3RD),08NOV11 INTD ON 08NOV11
     Route: 048
     Dates: start: 20100624
  7. PENICILLIN G BENZATHINE [Concomitant]

REACTIONS (3)
  - INTENTIONAL SELF-INJURY [None]
  - COMPLETED SUICIDE [None]
  - SYNCOPE [None]
